FAERS Safety Report 21982100 (Version 1)
Quarter: 2023Q1

REPORT INFORMATION
  Report Type: Report from Study
  Country: TW (occurrence: TW)
  Receive Date: 20230213
  Receipt Date: 20230213
  Transmission Date: 20230418
  Serious: Yes (Death)
  Sender: FDA-Public Use
  Company Number: TW-SUN PHARMACEUTICAL INDUSTRIES LTD-2023R1-377520

PATIENT
  Sex: Male

DRUGS (9)
  1. DEXAMETHASONE [Suspect]
     Active Substance: DEXAMETHASONE
     Indication: Salvage therapy
     Dosage: 10 MILLIGRAM/SQ. METER
     Route: 048
  2. DEXAMETHASONE [Suspect]
     Active Substance: DEXAMETHASONE
     Dosage: 20 MILLIGRAM/SQ. METER
     Route: 048
  3. VINCRISTINE [Suspect]
     Active Substance: VINCRISTINE
     Indication: Salvage therapy
     Dosage: 1.5 MILLIGRAM/SQ. METER
     Route: 042
  4. CYTARABINE [Suspect]
     Active Substance: CYTARABINE
     Indication: Salvage therapy
     Dosage: 6 MILLIGRAM
     Route: 065
  5. CYTARABINE [Suspect]
     Active Substance: CYTARABINE
     Dosage: 150 MILLIGRAM/SQ. METER
     Route: 042
  6. ETOPOSIDE [Suspect]
     Active Substance: ETOPOSIDE
     Indication: Immunochemotherapy
     Dosage: 100 MILLIGRAM/SQ. METER
     Route: 042
  7. HYDROCORTISONE [Suspect]
     Active Substance: HYDROCORTISONE
     Indication: Salvage therapy
     Dosage: 8 MILLIGRAM
     Route: 065
  8. METHOTREXATE [Suspect]
     Active Substance: METHOTREXATE
     Indication: Salvage therapy
     Dosage: 8 MILLIGRAM
     Route: 042
  9. EPIRUBICIN [Concomitant]
     Active Substance: EPIRUBICIN
     Indication: Salvage therapy
     Dosage: 25 MILLIGRAM/SQ. METER
     Route: 042

REACTIONS (1)
  - Disease recurrence [Fatal]
